FAERS Safety Report 12556405 (Version 1)
Quarter: 2016Q3

REPORT INFORMATION
  Report Type: Spontaneous
  Country: US (occurrence: None)
  Receive Date: 20160713
  Receipt Date: 20160713
  Transmission Date: 20161109
  Serious: Yes (Other)
  Sender: FDA-Public Use
  Company Number: None

PATIENT
  Age: 42 Year
  Sex: Male

DRUGS (16)
  1. SEROQUEL [Concomitant]
     Active Substance: QUETIAPINE FUMARATE
  2. BETAMETHASONE VALERATE. [Concomitant]
     Active Substance: BETAMETHASONE VALERATE
  3. LEVOTHYROXINE. [Concomitant]
     Active Substance: LEVOTHYROXINE
  4. TAMSULOSIN [Concomitant]
     Active Substance: TAMSULOSIN
  5. VENLAFAXINE [Concomitant]
     Active Substance: VENLAFAXINE HYDROCHLORIDE
  6. ATIVAN [Concomitant]
     Active Substance: LORAZEPAM
  7. VIVITROL [Suspect]
     Active Substance: NALTREXONE
     Indication: ALCOHOLISM
     Dosage: 380 MG EVERY 28 DAYS INTRAMUSCULAR
     Route: 030
     Dates: start: 20160708, end: 20160708
  8. CENTRUM [Concomitant]
     Active Substance: VITAMINS
  9. KLOR-CON [Concomitant]
     Active Substance: POTASSIUM CHLORIDE
  10. BACTROBAN [Concomitant]
     Active Substance: MUPIROCIN\MUPIROCIN CALCIUM
  11. OMEPRAZOLE. [Concomitant]
     Active Substance: OMEPRAZOLE
  12. PRIMIDONE. [Concomitant]
     Active Substance: PRIMIDONE
  13. VITAMIN B1 [Concomitant]
     Active Substance: THIAMINE HYDROCHLORIDE
  14. VENTOLIN HFA [Concomitant]
     Active Substance: ALBUTEROL SULFATE
  15. METOPROLOL. [Concomitant]
     Active Substance: METOPROLOL
  16. LITHIUM CARBONATE ER [Concomitant]
     Active Substance: LITHIUM CARBONATE

REACTIONS (5)
  - Somnolence [None]
  - Swollen tongue [None]
  - Heart rate increased [None]
  - Lip swelling [None]
  - Drug effect prolonged [None]

NARRATIVE: CASE EVENT DATE: 20160708
